FAERS Safety Report 18518711 (Version 1)
Quarter: 2020Q4

REPORT INFORMATION
  Report Type: Report from Study
  Country: None (occurrence: US)
  Receive Date: 20201118
  Receipt Date: 20201118
  Transmission Date: 20210114
  Serious: Yes (Hospitalization, Other)
  Sender: FDA-Public Use
  Company Number: US-ABBVIE-20K-163-3449059-00

PATIENT
  Age: 57 Year
  Sex: Female
  Weight: 115.77 kg

DRUGS (15)
  1. EZETIMIBE. [Concomitant]
     Active Substance: EZETIMIBE
     Indication: CARDIAC DISORDER
  2. AMLODIPINE [Concomitant]
     Active Substance: AMLODIPINE BESYLATE
     Indication: CARDIAC DISORDER
  3. METOPROLOL. [Concomitant]
     Active Substance: METOPROLOL
     Indication: CARDIAC DISORDER
  4. HYDROXYCHLOROQUINE [Concomitant]
     Active Substance: HYDROXYCHLOROQUINE
     Indication: SYSTEMIC LUPUS ERYTHEMATOSUS
  5. HUMIRA [Suspect]
     Active Substance: ADALIMUMAB
     Indication: RHEUMATOID ARTHRITIS
     Dosage: CITRATE FREE
     Route: 058
     Dates: start: 201811
  6. HUMIRA [Suspect]
     Active Substance: ADALIMUMAB
     Indication: COLITIS ULCERATIVE
     Dosage: CITRATE FREE
     Route: 058
  7. DULOXETINE. [Concomitant]
     Active Substance: DULOXETINE
     Indication: FIBROMYALGIA
  8. LOVENOX [Concomitant]
     Active Substance: ENOXAPARIN SODIUM
     Indication: ANTIPHOSPHOLIPID SYNDROME
  9. SYNTHROID [Concomitant]
     Active Substance: LEVOTHYROXINE SODIUM
     Indication: PRODUCT USED FOR UNKNOWN INDICATION
  10. ALENDRONATE [Concomitant]
     Active Substance: ALENDRONATE SODIUM
     Indication: OSTEOPOROSIS
  11. FOLIC ACID. [Concomitant]
     Active Substance: FOLIC ACID
     Indication: ARTHRITIS
  12. LEVOTHYROXINE. [Concomitant]
     Active Substance: LEVOTHYROXINE
     Indication: THYROID DISORDER
  13. HYDROCHLOROTHIAZIDE. [Concomitant]
     Active Substance: HYDROCHLOROTHIAZIDE
     Indication: CARDIAC DISORDER
  14. VITAMIN D3 [Concomitant]
     Active Substance: CHOLECALCIFEROL
     Indication: ARTHRITIS
  15. METHOTREXATE. [Concomitant]
     Active Substance: METHOTREXATE
     Indication: ARTHRITIS

REACTIONS (27)
  - Blood parathyroid hormone increased [Not Recovered/Not Resolved]
  - Glycosylated haemoglobin increased [Unknown]
  - CSF polymorphonuclear cell count decreased [Unknown]
  - Haematocrit increased [Unknown]
  - Pain [Unknown]
  - Nasopharyngitis [Unknown]
  - Tremor [Unknown]
  - Splenic thrombosis [Unknown]
  - Blood creatine increased [Not Recovered/Not Resolved]
  - Cardiolipin antibody positive [Unknown]
  - Skin exfoliation [Unknown]
  - Blood thyroid stimulating hormone increased [Unknown]
  - Weight increased [Not Recovered/Not Resolved]
  - Glomerular filtration rate decreased [Unknown]
  - Dry mouth [Unknown]
  - Neutrophil count decreased [Unknown]
  - Antinuclear antibody increased [Unknown]
  - COVID-19 [Unknown]
  - Thrombosis [Unknown]
  - Blood thyroid stimulating hormone abnormal [Unknown]
  - Constipation [Unknown]
  - Poor quality sleep [Not Recovered/Not Resolved]
  - Alopecia [Unknown]
  - Condition aggravated [Unknown]
  - Mean platelet volume increased [Unknown]
  - Chills [Unknown]
  - Lymphocyte count increased [Unknown]

NARRATIVE: CASE EVENT DATE: 202003
